FAERS Safety Report 4407083-3 (Version None)
Quarter: 2004Q3

REPORT INFORMATION
  Report Type: 
  Country: None (occurrence: None)
  Receive Date: 20040721
  Receipt Date: 20040713
  Transmission Date: 20050211
  Serious: Yes (Death)
  Sender: FDA-Public Use
  Company Number: NUBN20040006

PATIENT
  Age: 1 Day
  Sex: Male
  Weight: 3.0391 kg

DRUGS (2)
  1. NUBAIN [Suspect]
     Indication: LABOUR PAIN
     Dosage: 5 MG ONCE INJ
     Route: 064
     Dates: start: 20040305, end: 20040305
  2. MULTIVITAMIN [Concomitant]

REACTIONS (2)
  - DRUG EXPOSURE DURING PREGNANCY [None]
  - INTRA-UTERINE DEATH [None]
